FAERS Safety Report 15524156 (Version 1)
Quarter: 2018Q4

REPORT INFORMATION
  Report Type: Spontaneous
  Country: US (occurrence: US)
  Receive Date: 20181019
  Receipt Date: 20181019
  Transmission Date: 20190205
  Serious: No
  Sender: FDA-Public Use
  Company Number: US-ASTRAZENECA-2018SF20610

PATIENT
  Sex: Female

DRUGS (2)
  1. BYDUREON BCISE [Suspect]
     Active Substance: EXENATIDE
     Route: 065
     Dates: start: 20180918
  2. BYETTA [Suspect]
     Active Substance: EXENATIDE
     Route: 065

REACTIONS (2)
  - Nausea [Unknown]
  - Device malfunction [Unknown]
